FAERS Safety Report 6471988-2 (Version None)
Quarter: 2009Q4

REPORT INFORMATION
  Report Type: 
  Country: None (occurrence: None)
  Receive Date: 20091203
  Receipt Date: 20080530
  Transmission Date: 20100525
  Serious: Yes (Hospitalization)
  Sender: FDA-Public Use
  Company Number: US-ELI_LILLY_AND_COMPANY-US200804002420

PATIENT
  Sex: Female

DRUGS (11)
  1. HUMALOG MIX 75/25 [Suspect]
     Dosage: UNK, UNK
     Dates: start: 20070423
  2. ASPIRIN [Concomitant]
     Dosage: 81 MG, DAILY (1/D)
  3. NEXIUM [Concomitant]
     Dosage: 20 MG, DAILY (1/D)
  4. AMITRIPTYLINE [Concomitant]
     Dosage: 25 MG, DAILY (1/D)
  5. AMLODIPINE [Concomitant]
     Dosage: 10 MG, DAILY (1/D)
  6. CLONIDINE [Concomitant]
     Dosage: 0.3 MG, 3/D
  7. DARVOCET-N 100 [Concomitant]
     Dosage: 100 MG, AS NEEDED
  8. LEVOTHYROXINE SODIUM [Concomitant]
     Dosage: 50 MG, DAILY (1/D)
  9. METOPROLOL [Concomitant]
     Dosage: 25 MG, DAILY (1/D)
  10. RENAGEL [Concomitant]
     Dosage: 800 MG, UNK
  11. SIMVASTATIN [Concomitant]
     Dosage: 40 MG, DAILY (1/D)

REACTIONS (4)
  - ABSCESS [None]
  - GANGRENE [None]
  - PERIPHERAL VASCULAR DISORDER [None]
  - POOR PERIPHERAL CIRCULATION [None]
